FAERS Safety Report 4954335-4 (Version None)
Quarter: 2006Q1

REPORT INFORMATION
  Report Type: 
  Country: None (occurrence: None)
  Receive Date: 20060327
  Receipt Date: 20060315
  Transmission Date: 20060701
  Serious: Yes (Other)
  Sender: FDA-Public Use
  Company Number: PHHO2006MX04388

PATIENT
  Age: 65 Year
  Sex: Male

DRUGS (8)
  1. ZELMAC / HTF 919A [Suspect]
     Indication: GALLBLADDER PAIN
     Dosage: 6 MG, BID
     Route: 048
     Dates: start: 20060301, end: 20060314
  2. ALLOPURINOL [Concomitant]
  3. METOPROLOL [Concomitant]
  4. FUROSEMIDE [Concomitant]
  5. ENALAPRIL MALEATE [Concomitant]
  6. EUTIROX [Concomitant]
  7. PARIET [Concomitant]
  8. RIOPAN [Concomitant]

REACTIONS (2)
  - DIZZINESS [None]
  - GALLBLADDER PAIN [None]
